FAERS Safety Report 19478866 (Version 3)
Quarter: 2021Q4

REPORT INFORMATION
  Report Type: Report from Study
  Country: CA (occurrence: CA)
  Receive Date: 20210701
  Receipt Date: 20211028
  Transmission Date: 20220303
  Serious: Yes (Other)
  Sender: FDA-Public Use
  Company Number: CA-JNJFOC-20201051060

PATIENT
  Age: 37 Year
  Sex: Female
  Weight: 75.7 kg

DRUGS (3)
  1. REMICADE [Suspect]
     Active Substance: INFLIXIMAB
     Indication: Colitis ulcerative
     Route: 042
     Dates: start: 20160429
  2. REMICADE [Suspect]
     Active Substance: INFLIXIMAB
     Dosage: ON 01-APR-2021, THE PATIENT RECEIVED 34TH INFLIXIMAB INFUSION FOR DOSE OF 400 MG EVERY 6 WEEK
     Route: 042
  3. IMURAN [Concomitant]
     Active Substance: AZATHIOPRINE
     Indication: Colitis
     Route: 048

REACTIONS (8)
  - Mastitis [Recovered/Resolved]
  - Colitis [Not Recovered/Not Resolved]
  - Abnormal faeces [Unknown]
  - Exposure during pregnancy [Recovered/Resolved]
  - Herpes zoster [Recovered/Resolved]
  - Abdominal pain [Recovering/Resolving]
  - Product use issue [Unknown]
  - Off label use [Unknown]

NARRATIVE: CASE EVENT DATE: 20200601
